FAERS Safety Report 25364109 (Version 1)
Quarter: 2025Q2

REPORT INFORMATION
  Report Type: Spontaneous
  Country: US (occurrence: US)
  Receive Date: 20250527
  Receipt Date: 20250527
  Transmission Date: 20250716
  Serious: Yes (Other)
  Sender: BRISTOL-MYERS SQUIBB COMPANY
  Company Number: US-BRISTOL-MYERS SQUIBB COMPANY-2025-070528

PATIENT
  Age: 77 Year
  Sex: Female
  Weight: 46.72 kg

DRUGS (2)
  1. REVLIMID [Suspect]
     Active Substance: LENALIDOMIDE
     Indication: Plasma cell myeloma
     Dosage: 21 DS ON 7 DS OFF
     Route: 048
     Dates: start: 20250427
  2. REVLIMID [Suspect]
     Active Substance: LENALIDOMIDE
     Dosage: DAILY, 21 OUT OF 28 DAYS
     Route: 048
     Dates: start: 20240906

REACTIONS (3)
  - Haematochezia [Recovered/Resolved]
  - Abdominal pain upper [Recovered/Resolved]
  - Product physical issue [Recovering/Resolving]

NARRATIVE: CASE EVENT DATE: 20250512
